FAERS Safety Report 9272892 (Version 1)
Quarter: 2013Q2

REPORT INFORMATION
  Report Type: Spontaneous
  Country: FR (occurrence: FR)
  Receive Date: 20130506
  Receipt Date: 20130506
  Transmission Date: 20140414
  Serious: Yes (Hospitalization)
  Sender: FDA-Public Use
  Company Number: FR-TEVA-401969ISR

PATIENT
  Age: 30 Year
  Sex: Female

DRUGS (17)
  1. VINCRISTINE [Suspect]
     Indication: ACUTE LYMPHOCYTIC LEUKAEMIA
     Dosage: 2 MILLIGRAM DAILY; DAY 4 AND DAY 11 FOR TREATMENT
     Route: 042
     Dates: start: 20130316, end: 20130316
  2. VINCRISTINE [Suspect]
     Dosage: 2 MILLIGRAM DAILY; DAY 4 AND DAY 11 FOR TREATMENT
     Route: 042
     Dates: start: 20130323, end: 20130323
  3. DOXORUBICINE TEVA [Suspect]
     Indication: ACUTE LYMPHOCYTIC LEUKAEMIA
     Dosage: 86.5 MILLIGRAM DAILY; DAY 4 FOR TREATMENT
     Route: 042
     Dates: start: 20130316, end: 20130316
  4. METHOTREXATE TEVA [Suspect]
     Indication: ACUTE LYMPHOCYTIC LEUKAEMIA
     Dosage: DAY 1, DAY 8 AND DAY 16 FOR TREATMENT
     Route: 037
     Dates: start: 20130313, end: 20130313
  5. METHOTREXATE TEVA [Suspect]
     Dosage: DAY 1, DAY 8 AND DAY 16 FOR TREATMENT
     Route: 037
     Dates: start: 20130320, end: 20130320
  6. METHOTREXATE TEVA [Suspect]
     Dosage: DAY 1, DAY 8 AND DAY 16 FOR TREATMENT
     Route: 037
     Dates: start: 20130328, end: 20130328
  7. DEXAMETHASONE MYLAN [Suspect]
     Indication: ACUTE LYMPHOCYTIC LEUKAEMIA
     Dosage: DAY 1 TO DAY 4 AND DAY 11 TO DAY 15
     Route: 042
     Dates: start: 20130313, end: 20130316
  8. DEXAMETHASONE MYLAN [Suspect]
     Dosage: DAY 1 TO DAY 4 AND DAY 11 TO DAY 15
     Route: 042
     Dates: start: 20130313, end: 20130327
  9. GLIVEC 400 MG [Suspect]
     Indication: ACUTE LYMPHOCYTIC LEUKAEMIA
     Dosage: 800 MILLIGRAM DAILY;
     Route: 048
     Dates: start: 20130313, end: 20130327
  10. ENDOXAN [Suspect]
     Indication: ACUTE LYMPHOCYTIC LEUKAEMIA
     Dosage: 1038 MILLIGRAM DAILY; DAY 1 AND DAY 3 FOR TREATMENT
     Route: 042
     Dates: start: 20130313, end: 20130313
  11. ENDOXAN [Suspect]
     Dosage: 1038 MILLIGRAM DAILY; DAY 1 AND DAY 3 FOR TREATMENT
     Route: 042
     Dates: start: 20130315, end: 20130315
  12. ARACYTINE [Suspect]
     Indication: ACUTE LYMPHOCYTIC LEUKAEMIA
     Dosage: DAY 1, DAY 8 AND DAY 16 FOR TREATMENT
     Route: 037
     Dates: start: 20130313, end: 20130313
  13. ARACYTINE [Suspect]
     Dosage: DAY 1, DAY 8 AND DAY 16 FOR TREATMENT
     Route: 037
     Dates: start: 20130320, end: 20130320
  14. ARACYTINE [Suspect]
     Dosage: DAY 1, DAY 8 AND DAY 16 FOR TREATMENT
     Route: 037
     Dates: start: 20130328, end: 20130328
  15. METHYPREDNISOLONE MYLAN [Suspect]
     Indication: ACUTE LYMPHOCYTIC LEUKAEMIA
     Dosage: DAY 1, DAY 8 AND DAY 16 FOR TREATMENT
     Route: 037
     Dates: start: 20130313, end: 20130313
  16. METHYPREDNISOLONE MYLAN [Suspect]
     Dosage: DAY 1, DAY 8 AND DAY 16 FOR TREATMENT
     Route: 037
     Dates: start: 20130320, end: 20130320
  17. METHYPREDNISOLONE MYLAN [Suspect]
     Dosage: DAY 1, DAY 8 AND DAY 16 FOR TREATMENT
     Route: 037
     Dates: start: 20130328, end: 20130328

REACTIONS (2)
  - Posterior reversible encephalopathy syndrome [Recovered/Resolved]
  - Convulsion [Recovered/Resolved]
